FAERS Safety Report 9276533 (Version 3)
Quarter: 2017Q4

REPORT INFORMATION
  Report Type: Report from Study
  Country: US (occurrence: US)
  Receive Date: 20130507
  Receipt Date: 20171122
  Transmission Date: 20180321
  Serious: Yes (Death, Other)
  Sender: FDA-Public Use
  Company Number: US-PFIZER INC-2013137369

PATIENT
  Age: 45 Year
  Sex: Male

DRUGS (18)
  1. CARBOPLATIN. [Suspect]
     Active Substance: CARBOPLATIN
     Indication: EAR NEOPLASM
  2. TEMSIROLIMUS [Suspect]
     Active Substance: TEMSIROLIMUS
     Indication: THROAT CANCER
  3. CARBOPLATIN. [Suspect]
     Active Substance: CARBOPLATIN
     Indication: HEAD AND NECK CANCER
     Dosage: UNK
     Dates: start: 20130205
  4. CARBOPLATIN. [Suspect]
     Active Substance: CARBOPLATIN
     Indication: MALIGNANT NEOPLASM OF EYE
  5. TAXOL [Suspect]
     Active Substance: PACLITAXEL
     Indication: SQUAMOUS CELL CARCINOMA OF HEAD AND NECK
  6. TAXOL [Suspect]
     Active Substance: PACLITAXEL
     Indication: EAR NEOPLASM
  7. TEMSIROLIMUS [Suspect]
     Active Substance: TEMSIROLIMUS
     Indication: SQUAMOUS CELL CARCINOMA OF HEAD AND NECK
  8. TEMSIROLIMUS [Suspect]
     Active Substance: TEMSIROLIMUS
     Indication: MALIGNANT NEOPLASM OF EYE
  9. TAXOL [Suspect]
     Active Substance: PACLITAXEL
     Indication: THROAT CANCER
  10. TEMSIROLIMUS [Suspect]
     Active Substance: TEMSIROLIMUS
     Indication: EAR NEOPLASM
  11. CARBOPLATIN. [Suspect]
     Active Substance: CARBOPLATIN
     Indication: HEAD AND NECK CANCER METASTATIC
  12. CARBOPLATIN. [Suspect]
     Active Substance: CARBOPLATIN
     Indication: SQUAMOUS CELL CARCINOMA OF HEAD AND NECK
  13. TEMSIROLIMUS [Suspect]
     Active Substance: TEMSIROLIMUS
     Indication: HEAD AND NECK CANCER
     Dosage: UNK
     Dates: start: 20130205
  14. TAXOL [Suspect]
     Active Substance: PACLITAXEL
     Indication: HEAD AND NECK CANCER METASTATIC
  15. TAXOL [Suspect]
     Active Substance: PACLITAXEL
     Indication: MALIGNANT NEOPLASM OF EYE
  16. TEMSIROLIMUS [Suspect]
     Active Substance: TEMSIROLIMUS
     Indication: HEAD AND NECK CANCER METASTATIC
  17. TAXOL [Suspect]
     Active Substance: PACLITAXEL
     Indication: HEAD AND NECK CANCER
     Dosage: UNK
     Dates: start: 20130205
  18. CARBOPLATIN. [Suspect]
     Active Substance: CARBOPLATIN
     Indication: THROAT CANCER

REACTIONS (2)
  - Sudden death [Fatal]
  - Mental status changes [Unknown]

NARRATIVE: CASE EVENT DATE: 20130429
